FAERS Safety Report 22011414 (Version 1)
Quarter: 2023Q1

REPORT INFORMATION
  Report Type: Spontaneous
  Country: CA (occurrence: CA)
  Receive Date: 20230220
  Receipt Date: 20230220
  Transmission Date: 20230418
  Serious: Yes (Death, Other)
  Sender: FDA-Public Use
  Company Number: CA-TEVA-2023-CA-2856534

PATIENT
  Age: 73 Year
  Sex: Female

DRUGS (2)
  1. OCTREOTIDE [Suspect]
     Active Substance: OCTREOTIDE
     Indication: Aesthesioneuroblastoma
     Route: 065
  2. FLUOROURACIL [Suspect]
     Active Substance: FLUOROURACIL
     Indication: Aesthesioneuroblastoma
     Dosage: CYCLICAL
     Route: 065

REACTIONS (3)
  - Coronary artery disease [Fatal]
  - Thrombocytopenia [Fatal]
  - Therapeutic product effect incomplete [Fatal]
